FAERS Safety Report 10189476 (Version 1)
Quarter: 2014Q2

REPORT INFORMATION
  Report Type: Spontaneous
  Country: ES (occurrence: ES)
  Receive Date: 20140522
  Receipt Date: 20140522
  Transmission Date: 20141212
  Serious: Yes (Other)
  Sender: FDA-Public Use
  Company Number: ES-PFIZER INC-2014137016

PATIENT
  Age: 26 Year
  Sex: Female

DRUGS (1)
  1. LOETTE [Suspect]
     Dosage: UNK
     Dates: start: 201312

REACTIONS (1)
  - Hyperbilirubinaemia [Unknown]
